FAERS Safety Report 11422659 (Version 4)
Quarter: 2015Q3

REPORT INFORMATION
  Report Type: Report from Study
  Country: DE (occurrence: DE)
  Receive Date: 20150827
  Receipt Date: 20150928
  Transmission Date: 20151125
  Serious: Yes (Death, Hospitalization)
  Sender: FDA-Public Use
  Company Number: PHHY2015DE101897

PATIENT
  Sex: Female
  Weight: 48 kg

DRUGS (4)
  1. AFINITOR [Suspect]
     Active Substance: EVEROLIMUS
     Indication: BREAST CANCER METASTATIC
     Dosage: 5 MG, QD (ONCE DAILY)
     Route: 048
     Dates: start: 20150127, end: 20150414
  2. EXEMESTANE. [Concomitant]
     Active Substance: EXEMESTANE
     Indication: BREAST CANCER METASTATIC
     Dosage: 25 MG, QD (ONCE DAILY)
     Route: 048
     Dates: start: 20150127, end: 20150820
  3. DENOSUMAB [Concomitant]
     Active Substance: DENOSUMAB
     Indication: PRODUCT USED FOR UNKNOWN INDICATION
     Dosage: 120 MG, EVERY FOUR WEEKS
     Route: 058
     Dates: start: 20140520
  4. AFINITOR [Suspect]
     Active Substance: EVEROLIMUS
     Dosage: 10 MG, QD (ONCE DAILY)
     Route: 048
     Dates: start: 20150415

REACTIONS (3)
  - General physical health deterioration [Fatal]
  - Metastases to meninges [Fatal]
  - Malignant neoplasm progression [Fatal]

NARRATIVE: CASE EVENT DATE: 20150820
